FAERS Safety Report 21556460 (Version 4)
Quarter: 2023Q2

REPORT INFORMATION
  Report Type: Spontaneous
  Country: IT (occurrence: IT)
  Receive Date: 20221104
  Receipt Date: 20230512
  Transmission Date: 20230722
  Serious: Yes (Life-Threatening, Hospitalization, Other)
  Sender: FDA-Public Use
  Company Number: IT-UCBSA-2022054251

PATIENT
  Age: 5 Year
  Sex: Male

DRUGS (25)
  1. LEVETIRACETAM [Suspect]
     Active Substance: LEVETIRACETAM
     Indication: Immune-mediated encephalitis
     Dosage: UPTO 50 MILLIGRAM/KILOGRAM
     Route: 065
  2. LEVETIRACETAM [Suspect]
     Active Substance: LEVETIRACETAM
     Indication: Febrile infection-related epilepsy syndrome
  3. LEVETIRACETAM [Suspect]
     Active Substance: LEVETIRACETAM
     Indication: Epilepsy
  4. KEPPRA [Suspect]
     Active Substance: LEVETIRACETAM
     Indication: Epilepsy
     Dosage: UNK, LEVETIRACETAM UP TO 50 MG/KG
     Route: 065
  5. KEPPRA [Suspect]
     Active Substance: LEVETIRACETAM
     Indication: Immune-mediated encephalitis
  6. KEPPRA [Suspect]
     Active Substance: LEVETIRACETAM
     Indication: Febrile infection-related epilepsy syndrome
  7. KEPPRA [Suspect]
     Active Substance: LEVETIRACETAM
     Indication: Partial seizures
  8. THIOPENTAL [Suspect]
     Active Substance: THIOPENTAL
     Indication: Epilepsy
     Dosage: UNK
     Route: 065
  9. VALPROATE [Suspect]
     Active Substance: VALPROIC ACID
     Indication: Epilepsy
     Dosage: VALPROATE UP TO 30 MG/KG
     Route: 065
  10. VALPROATE [Suspect]
     Active Substance: VALPROIC ACID
     Indication: Febrile infection-related epilepsy syndrome
  11. VALPROATE [Suspect]
     Active Substance: VALPROIC ACID
     Indication: Immune-mediated encephalitis
  12. VALPROATE [Suspect]
     Active Substance: VALPROIC ACID
     Indication: Partial seizures
  13. METHYLPREDNISOLONE [Suspect]
     Active Substance: METHYLPREDNISOLONE
     Indication: Encephalopathy
     Dosage: 30 MG/KG, 1X/DAY FOR 5 DAYS (HIGH-DOSE)
     Route: 042
  14. METHYLPREDNISOLONE [Suspect]
     Active Substance: METHYLPREDNISOLONE
     Indication: Febrile infection-related epilepsy syndrome
  15. METHYLPREDNISOLONE [Suspect]
     Active Substance: METHYLPREDNISOLONE
     Indication: Immune-mediated encephalitis
  16. TOPIRAMATE [Concomitant]
     Active Substance: TOPIRAMATE
     Indication: Encephalopathy
     Dosage: UNK
     Route: 065
  17. PHENYTOIN SODIUM [Concomitant]
     Active Substance: PHENYTOIN SODIUM
     Indication: Epilepsy
     Dosage: UNK
     Route: 065
  18. PHENYTOIN SODIUM [Concomitant]
     Active Substance: PHENYTOIN SODIUM
     Indication: Febrile infection-related epilepsy syndrome
  19. PHENYTOIN SODIUM [Concomitant]
     Active Substance: PHENYTOIN SODIUM
     Indication: Partial seizures
  20. MIDAZOLAM [Concomitant]
     Active Substance: MIDAZOLAM
     Indication: Encephalopathy
     Dosage: UNK
     Route: 065
  21. MIDAZOLAM [Concomitant]
     Active Substance: MIDAZOLAM
     Indication: Sedative therapy
  22. PHENOBARBITAL [Concomitant]
     Active Substance: PHENOBARBITAL
     Indication: Epilepsy
     Dosage: UNK
     Route: 065
  23. PHENOBARBITAL [Concomitant]
     Active Substance: PHENOBARBITAL
     Indication: Febrile infection-related epilepsy syndrome
  24. PHENOBARBITAL [Concomitant]
     Active Substance: PHENOBARBITAL
     Indication: Partial seizures
  25. METHYLPREDNISOLONE [Concomitant]
     Active Substance: METHYLPREDNISOLONE
     Indication: Encephalopathy
     Dosage: UNK
     Route: 065

REACTIONS (15)
  - Drug ineffective [Unknown]
  - Cerebral atrophy [Recovered/Resolved]
  - Partial seizures [Recovering/Resolving]
  - Hemiparesis [Recovered/Resolved]
  - Hallucination [Unknown]
  - Multiple-drug resistance [Unknown]
  - Behaviour disorder [Recovering/Resolving]
  - Language disorder [Recovering/Resolving]
  - Aphasia [Unknown]
  - Echopraxia [Unknown]
  - Psychomotor hyperactivity [Unknown]
  - Inappropriate affect [Unknown]
  - Asthenia [Unknown]
  - Insomnia [Unknown]
  - Off label use [Unknown]
